FAERS Safety Report 10330079 (Version 1)
Quarter: 2014Q3

REPORT INFORMATION
  Report Type: Spontaneous
  Country: US (occurrence: US)
  Receive Date: 20140721
  Receipt Date: 20140721
  Transmission Date: 20150326
  Serious: Yes (Other)
  Sender: FDA-Public Use
  Company Number: US-ABBVIE-14P-163-1260914-00

PATIENT
  Sex: Male

DRUGS (1)
  1. ANDROGEL [Suspect]
     Active Substance: TESTOSTERONE
     Indication: BLOOD TESTOSTERONE DECREASED

REACTIONS (7)
  - Cerebrovascular accident [Unknown]
  - Physical disability [Unknown]
  - Emotional distress [Unknown]
  - Injury [Unknown]
  - Impaired work ability [Unknown]
  - Economic problem [Unknown]
  - Tension [Unknown]
